FAERS Safety Report 9540692 (Version 1)
Quarter: 2013Q3

REPORT INFORMATION
  Report Type: Spontaneous
  Country: US (occurrence: US)
  Receive Date: 20130920
  Receipt Date: 20130920
  Transmission Date: 20140515
  Serious: Yes (Death)
  Sender: FDA-Public Use
  Company Number: US-MERZ PHARMACEUTICALS, LLC DRUG SAFETY-13MRZ-00081

PATIENT
  Age: 63 Year
  Sex: Male
  Weight: 90.8 kg

DRUGS (1)
  1. XEOMIN [Suspect]
     Indication: MUSCLE SPASTICITY

REACTIONS (1)
  - Death [None]
